FAERS Safety Report 8608280-3 (Version None)
Quarter: 2012Q3

REPORT INFORMATION
  Report Type: 
  Country: None (occurrence: None)
  Receive Date: 20120821
  Receipt Date: 20120813
  Transmission Date: 20120928
  Serious: Yes (Hospitalization, Other)
  Sender: FDA-Public Use
  Company Number: US-JNJFOC-20120806998

PATIENT
  Sex: Female
  Weight: 92.99 kg

DRUGS (17)
  1. REMICADE [Suspect]
     Indication: FISTULA
     Route: 042
     Dates: start: 20110801, end: 20120716
  2. GABAPENTIN [Concomitant]
     Dosage: 300MG/--/100MG/TWICE DAILY/ORAL
     Route: 048
  3. BIFERARX [Concomitant]
     Indication: BLOOD IRON
     Route: 048
     Dates: start: 20110101
  4. IMODIUM [Concomitant]
     Indication: ENTEROSTOMY
     Route: 048
  5. FLUCONAZOLE [Concomitant]
     Indication: FUNGAL INFECTION
     Route: 048
     Dates: start: 20110101
  6. HYDROCORTISONE ACETATE [Concomitant]
     Indication: RECTAL HAEMORRHAGE
     Dosage: HYDROCORTISONE AC
     Route: 054
     Dates: start: 20110101
  7. LUMIDOL [Concomitant]
     Indication: ENTEROSTOMY
     Route: 048
  8. AMBIEN [Concomitant]
     Indication: SLEEP DISORDER
     Route: 048
     Dates: start: 20100101
  9. MOBIC [Concomitant]
     Indication: ARTHRALGIA
     Route: 048
     Dates: start: 20110101
  10. REMICADE [Suspect]
     Indication: CROHN'S DISEASE
     Route: 042
     Dates: start: 20110801, end: 20120716
  11. AUGMENTIN '500' [Concomitant]
     Indication: OSTEOMYELITIS
     Route: 048
     Dates: start: 20100701
  12. NEXIUM [Concomitant]
     Indication: GASTROOESOPHAGEAL REFLUX DISEASE
     Route: 048
     Dates: start: 20110101
  13. HYDROCODONE BITARTRATE [Concomitant]
     Indication: PAIN
     Route: 048
     Dates: start: 20080101
  14. BENADRYL [Concomitant]
     Indication: PREMEDICATION
     Dates: start: 20110801
  15. GABAPENTIN [Concomitant]
     Indication: NEUROPATHY PERIPHERAL
     Route: 048
     Dates: start: 20120301
  16. PROZAC [Concomitant]
     Indication: DEPRESSION
     Route: 048
     Dates: end: 20120701
  17. STEROIDS NOS [Concomitant]
     Indication: PREMEDICATION
     Dates: start: 20120716

REACTIONS (14)
  - DYSPNOEA [None]
  - PAIN IN EXTREMITY [None]
  - INTESTINAL OBSTRUCTION [None]
  - DIZZINESS [None]
  - GASTROINTESTINAL STOMA COMPLICATION [None]
  - INFUSION RELATED REACTION [None]
  - RED BLOOD CELL SEDIMENTATION RATE DECREASED [None]
  - VITAMIN B12 DEFICIENCY [None]
  - MEMORY IMPAIRMENT [None]
  - MOBILITY DECREASED [None]
  - ARTHRALGIA [None]
  - ABDOMINAL PAIN [None]
  - NAUSEA [None]
  - FLUSHING [None]
